FAERS Safety Report 19020479 (Version 3)
Quarter: 2021Q2

REPORT INFORMATION
  Report Type: Report from Study
  Country: US (occurrence: US)
  Receive Date: 20210317
  Receipt Date: 20210522
  Transmission Date: 20210717
  Serious: No
  Sender: FDA-Public Use
  Company Number: US-B.I. PHARMACEUTICALS,INC./RIDGEFIELD-2020-BI-068965

PATIENT
  Age: 74 Year
  Sex: Male

DRUGS (2)
  1. OFEV [Suspect]
     Active Substance: NINTEDANIB
     Indication: IDIOPATHIC PULMONARY FIBROSIS
     Dosage: 150MG BY MOUTH TWICE DAILY
     Route: 048
     Dates: start: 20201120, end: 20210210
  2. OFEV [Suspect]
     Active Substance: NINTEDANIB
     Indication: INTERSTITIAL LUNG DISEASE
     Dosage: 150 MG PO BID EVERY OTHER DAY
     Route: 048

REACTIONS (6)
  - Headache [Not Recovered/Not Resolved]
  - Diarrhoea [Recovered/Resolved]
  - Gastric disorder [Unknown]
  - Herpes zoster [Not Recovered/Not Resolved]
  - Headache [Recovered/Resolved]
  - Diarrhoea [Not Recovered/Not Resolved]

NARRATIVE: CASE EVENT DATE: 202011
